FAERS Safety Report 10545067 (Version 2)
Quarter: 2014Q4

REPORT INFORMATION
  Report Type: Spontaneous
  Country: US (occurrence: US)
  Receive Date: 20141027
  Receipt Date: 20141126
  Transmission Date: 20150529
  Serious: No
  Sender: FDA-Public Use
  Company Number: US-PFIZER INC-2014291223

PATIENT
  Sex: Male

DRUGS (1)
  1. HUMATIN [Suspect]
     Active Substance: PAROMOMYCIN SULFATE
     Indication: PARASITIC TEST POSITIVE
     Dosage: UNK
     Dates: start: 201408

REACTIONS (2)
  - Candida infection [Unknown]
  - Diarrhoea [Not Recovered/Not Resolved]
